FAERS Safety Report 25615062 (Version 1)
Quarter: 2025Q3

REPORT INFORMATION
  Report Type: Spontaneous
  Country: US (occurrence: US)
  Receive Date: 20250729
  Receipt Date: 20250729
  Transmission Date: 20251021
  Serious: No
  Sender: TAKEDA
  Company Number: US-TAKEDA-2025TUS066928

PATIENT
  Sex: Female

DRUGS (2)
  1. LIVTENCITY [Suspect]
     Active Substance: MARIBAVIR
     Indication: Renal transplant
     Dosage: 400 MILLIGRAM, BID
     Dates: start: 20250723
  2. LIVTENCITY [Suspect]
     Active Substance: MARIBAVIR
     Indication: Post procedural complication

REACTIONS (1)
  - Taste disorder [Unknown]
